FAERS Safety Report 14766342 (Version 4)
Quarter: 2021Q2

REPORT INFORMATION
  Report Type: Report from Study
  Country: DE (occurrence: DE)
  Receive Date: 20180416
  Receipt Date: 20210416
  Transmission Date: 20210716
  Serious: Yes (Death, Life-Threatening, Hospitalization, Other)
  Sender: FDA-Public Use
  Company Number: PHHY2017DE152234

PATIENT
  Age: 73 Year
  Sex: Male
  Weight: 73 kg

DRUGS (4)
  1. CIPROBAY (CIPROFLOXACIN HYDROCHLORIDE) [Concomitant]
     Active Substance: CIPROFLOXACIN HYDROCHLORIDE
     Indication: PROPHYLAXIS
     Dosage: 250 MG, BID
     Route: 048
     Dates: start: 20171013, end: 20171017
  2. AFINITOR [Suspect]
     Active Substance: EVEROLIMUS
     Indication: METASTATIC RENAL CELL CARCINOMA
     Dosage: 10 MG, QD
     Route: 048
     Dates: start: 20170915, end: 20171012
  3. AMLODIPIN [Concomitant]
     Active Substance: AMLODIPINE BESYLATE
     Indication: HYPERTENSION
     Dosage: 5 MG, QD
     Route: 048
  4. FENISTIL [Concomitant]
     Active Substance: DIMETHINDENE
     Indication: PRURITUS
     Dosage: 4 MG, QD
     Route: 048

REACTIONS (7)
  - General physical health deterioration [Fatal]
  - Anaemia [Not Recovered/Not Resolved]
  - Blood creatinine increased [Not Recovered/Not Resolved]
  - Blood lactate dehydrogenase increased [Fatal]
  - Acute kidney injury [Not Recovered/Not Resolved]
  - Metastatic renal cell carcinoma [Fatal]
  - Malignant neoplasm progression [Fatal]

NARRATIVE: CASE EVENT DATE: 20170920
